FAERS Safety Report 20811180 (Version 2)
Quarter: 2022Q2

REPORT INFORMATION
  Report Type: Report from Study
  Country: IN (occurrence: IN)
  Receive Date: 20220510
  Receipt Date: 20220519
  Transmission Date: 20220721
  Serious: Yes (Hospitalization, Other)
  Sender: FDA-Public Use
  Company Number: IN-BRISTOL-MYERS SQUIBB COMPANY-2022-033129

PATIENT
  Age: 57 Year
  Sex: Female
  Weight: 53 kg

DRUGS (21)
  1. INJ CARBAPENEM [Concomitant]
     Indication: Product used for unknown indication
     Route: 042
     Dates: start: 20220416, end: 20220418
  2. TAB  PANTOPRAZOLE [Concomitant]
     Indication: Product used for unknown indication
     Dosage: ONGOING
     Route: 048
     Dates: start: 20220416
  3. TAB AZITHRAL [Concomitant]
     Indication: Product used for unknown indication
     Route: 048
     Dates: start: 20220416, end: 20220417
  4. INJ HYDROCORTISONE SODIUM SUCCINATE [Concomitant]
     Indication: Product used for unknown indication
     Route: 042
     Dates: start: 20220416, end: 20220417
  5. TAB TAMIFLU [Concomitant]
     Indication: Product used for unknown indication
     Route: 048
     Dates: start: 20220416, end: 20220417
  6. INJ LASIX [Concomitant]
     Indication: Product used for unknown indication
     Route: 042
     Dates: start: 20220417, end: 20220419
  7. INJ LOVENOX [Concomitant]
     Indication: Product used for unknown indication
     Route: 042
     Dates: start: 20220417, end: 20220420
  8. INJ GLARGINE [Concomitant]
     Indication: Product used for unknown indication
     Dosage: 1 DOSAGE FORM= 36 UNITS NOS
     Route: 042
     Dates: start: 20220418, end: 20220421
  9. INJ GLARGINE [Concomitant]
     Dosage: 1 DOSAGE FORM= 24 UNITS NOS
     Route: 058
     Dates: start: 20220422
  10. TAB CEFIXIME [Concomitant]
     Indication: Product used for unknown indication
     Dosage: ONGOING
     Route: 048
     Dates: start: 20220418
  11. TAB PREDNISOLONE [Concomitant]
     Indication: Product used for unknown indication
     Dosage: ONGOING
     Route: 048
     Dates: start: 20220418
  12. TAB LASIX [Concomitant]
     Indication: Product used for unknown indication
     Dosage: ONGOING
     Route: 048
     Dates: start: 20220418
  13. TABLET METFORMIN [Concomitant]
     Indication: Product used for unknown indication
     Dosage: ONGOING
     Route: 048
     Dates: start: 202110
  14. TABLET METFORMIN [Concomitant]
     Dosage: ONGOING
     Route: 048
     Dates: start: 202110
  15. SYRUP POTKLOR [Concomitant]
     Indication: Product used for unknown indication
     Dosage: 1 DOSAGE FORM= 15 UNITS NOS
     Route: 048
     Dates: start: 20220418, end: 20220420
  16. TAB RIVAROXABAN [Concomitant]
     Indication: Product used for unknown indication
     Dosage: ONGOING
     Route: 048
     Dates: start: 20220422
  17. TAB FUROSEMIDE [Concomitant]
     Indication: Product used for unknown indication
     Dosage: ONGOING
     Route: 048
     Dates: start: 20220422
  18. TAB PARACETAMOL [Concomitant]
     Indication: Product used for unknown indication
     Dosage: ONGOING
     Route: 048
     Dates: start: 20220422
  19. TAB METOCLOPRAMIDE [Concomitant]
     Indication: Product used for unknown indication
     Dosage: ONGOING
     Route: 048
     Dates: start: 20220422
  20. INSULIN(HUMULIN R) [Concomitant]
     Indication: Product used for unknown indication
     Dosage: 1 DOSAGE FORM= 30 UNITS NOS?ONGOING
     Route: 058
     Dates: start: 20220422
  21. LIQ DUPHALAC [Concomitant]
     Indication: Product used for unknown indication
     Dosage: 1 DOSAGE FORM= 20 UNITS NOS?ONGOING
     Route: 048
     Dates: start: 20220422

REACTIONS (1)
  - Respiratory distress [Recovering/Resolving]

NARRATIVE: CASE EVENT DATE: 20220501
